FAERS Safety Report 4668285-4 (Version None)
Quarter: 2005Q2

REPORT INFORMATION
  Report Type: 
  Country: None (occurrence: None)
  Receive Date: 20050523
  Receipt Date: 20050113
  Transmission Date: 20051028
  Serious: Yes (Other)
  Sender: FDA-Public Use
  Company Number: PHEH2005US00882

PATIENT
  Sex: Female

DRUGS (2)
  1. ZOMETA [Suspect]
  2. PAMIDRONATE DISODIUM [Suspect]
     Dosage: UNK, UNK

REACTIONS (1)
  - OSTEONECROSIS [None]
